FAERS Safety Report 16050367 (Version 1)
Quarter: 2019Q1

REPORT INFORMATION
  Report Type: Spontaneous
  Country: LV (occurrence: LV)
  Receive Date: 20190308
  Receipt Date: 20190308
  Transmission Date: 20190418
  Serious: Yes (Hospitalization)
  Sender: FDA-Public Use
  Company Number: LV-ROCHE-2273942

PATIENT
  Age: 69 Year
  Sex: Female

DRUGS (5)
  1. SORTIS [Concomitant]
     Active Substance: ATORVASTATIN
     Route: 048
  2. TAMIFLU [Suspect]
     Active Substance: OSELTAMIVIR PHOSPHATE
     Indication: INFLUENZA
     Route: 048
     Dates: start: 20190212, end: 20190216
  3. GLICLADA [Concomitant]
     Active Substance: GLICLAZIDE
     Route: 048
  4. METOPROLOL. [Concomitant]
     Active Substance: METOPROLOL
     Route: 048
  5. PRESTARIUM [Concomitant]
     Active Substance: PERINDOPRIL
     Route: 048

REACTIONS (3)
  - Platelet count decreased [Recovering/Resolving]
  - Pallor [Recovering/Resolving]
  - Abnormal behaviour [Recovering/Resolving]

NARRATIVE: CASE EVENT DATE: 20190217
